FAERS Safety Report 9647184 (Version 1)
Quarter: 2013Q4

REPORT INFORMATION
  Report Type: Spontaneous
  Country: US (occurrence: US)
  Receive Date: 20131027
  Receipt Date: 20131027
  Transmission Date: 20140711
  Serious: Yes (Death)
  Sender: FDA-Public Use
  Company Number: US-NAPPMUNDI-USA-2013-0105323

PATIENT
  Sex: Male

DRUGS (3)
  1. OXYCONTIN (NDA 22-272) [Suspect]
     Indication: PRODUCT USED FOR UNKNOWN INDICATION
     Dosage: UNKNOWN
  2. XANAX [Suspect]
     Indication: SUBSTANCE USE
     Dosage: UNKNOWN
  3. COCAINE [Suspect]
     Indication: SUBSTANCE USE
     Dosage: UNKNOWN

REACTIONS (1)
  - Overdose [Fatal]
